FAERS Safety Report 6507734-3 (Version None)
Quarter: 2009Q4

REPORT INFORMATION
  Report Type: 
  Country: None (occurrence: None)
  Receive Date: 20091221
  Receipt Date: 20091216
  Transmission Date: 20100525
  Serious: Yes (Death, Life-Threatening, Hospitalization)
  Sender: FDA-Public Use
  Company Number: JP-ASTRAZENECA-2009AP02685

PATIENT
  Age: 74 Year
  Sex: Male
  Weight: 54 kg

DRUGS (1)
  1. IRESSA [Suspect]
     Indication: LUNG ADENOCARCINOMA
     Route: 048
     Dates: start: 20041214, end: 20041230

REACTIONS (3)
  - ILEUS [None]
  - LUNG DISORDER [None]
  - MELAENA [None]
